FAERS Safety Report 6969262-0 (Version None)
Quarter: 2010Q3

REPORT INFORMATION
  Report Type: 
  Country: None (occurrence: None)
  Receive Date: 20100907
  Receipt Date: 20100825
  Transmission Date: 20110219
  Serious: Yes (Disabling)
  Sender: FDA-Public Use
  Company Number: JP-ELI_LILLY_AND_COMPANY-JP201008000018

PATIENT
  Age: 45 Year
  Sex: Male

DRUGS (3)
  1. ZYPREXA [Suspect]
     Dosage: 5 MG, DAILY (1/D)
     Route: 048
     Dates: start: 20100521
  2. SENIRAN [Concomitant]
     Indication: NEUROSIS
     Dosage: 15 MG, UNKNOWN, BEFORE RECEIVING OLANZAPIN
     Route: 048
  3. MYSLEE [Concomitant]
     Indication: NEUROSIS
     Dosage: 5 MG, DAILY (1/D), BEFORE RECEIVING OLANZAPIN
     Route: 048

REACTIONS (2)
  - HYPOKALAEMIA [None]
  - OFF LABEL USE [None]
